FAERS Safety Report 6711569-6 (Version None)
Quarter: 2010Q2

REPORT INFORMATION
  Report Type: 
  Country: None (occurrence: None)
  Receive Date: 20100505
  Receipt Date: 20100423
  Transmission Date: 20101027
  Serious: Yes (Hospitalization)
  Sender: FDA-Public Use
  Company Number: PHHY2010US26384

PATIENT
  Sex: Male

DRUGS (3)
  1. EXJADE [Suspect]
     Indication: SICKLE CELL ANAEMIA
     Dosage: 750 MG, DAILY
     Route: 048
     Dates: start: 20091009
  2. ALBUTEROL [Concomitant]
  3. FLOVENT [Concomitant]

REACTIONS (2)
  - SINUSITIS [None]
  - SURGERY [None]
